FAERS Safety Report 25064413 (Version 1)
Quarter: 2025Q1

REPORT INFORMATION
  Report Type: Spontaneous
  Country: US (occurrence: US)
  Receive Date: 20250311
  Receipt Date: 20250311
  Transmission Date: 20250409
  Serious: No
  Sender: FRESENIUS KABI
  Company Number: US-FreseniusKabi-FK202503241

PATIENT
  Age: 45 Year
  Sex: Female
  Weight: 128.82 kg

DRUGS (3)
  1. DIPHENHYDRAMINE [Suspect]
     Active Substance: DIPHENHYDRAMINE
     Indication: Premedication
  2. PANZYGA [Suspect]
     Active Substance: HUMAN IMMUNOGLOBULIN G
     Indication: Myasthenia gravis
     Dosage: INFUSION
  3. ACETAMINOPHEN [Suspect]
     Active Substance: ACETAMINOPHEN
     Indication: Premedication

REACTIONS (5)
  - Drug ineffective for unapproved indication [Unknown]
  - Rash papular [Unknown]
  - Rash pruritic [Unknown]
  - Peripheral swelling [Unknown]
  - Off label use [Unknown]
